FAERS Safety Report 9768855 (Version 2)
Quarter: 2013Q4

REPORT INFORMATION
  Report Type: Spontaneous
  Country: US (occurrence: US)
  Receive Date: 20131218
  Receipt Date: 20131218
  Transmission Date: 20140711
  Serious: Yes (Death)
  Sender: FDA-Public Use
  Company Number: US-ROCHE-673127

PATIENT
  Age: 77 Year
  Sex: Male

DRUGS (4)
  1. RITUXIMAB [Suspect]
     Indication: CHRONIC LYMPHOCYTIC LEUKAEMIA
     Dosage: 1 CYCLE AFTER THAT RECEIVED 3 ADDITIONAL DOSES OF RITUXIMAB MONOTHERAPY AT 3-WEEK INTERVAL
     Route: 065
  2. FLUDARABINE [Suspect]
     Indication: CHRONIC LYMPHOCYTIC LEUKAEMIA
     Dosage: 1 CYCLE
     Route: 065
     Dates: start: 2006
  3. CYCLOPHOSPHAMIDE [Suspect]
     Indication: CHRONIC LYMPHOCYTIC LEUKAEMIA
     Dosage: 1 CYCLE
     Route: 065
     Dates: start: 2006
  4. CYTARABINE [Suspect]
     Indication: CHRONIC LYMPHOCYTIC LEUKAEMIA
     Dosage: FOR 5 DAYS
     Route: 065

REACTIONS (1)
  - Progressive multifocal leukoencephalopathy [Fatal]
